FAERS Safety Report 16175768 (Version 1)
Quarter: 2019Q2

REPORT INFORMATION
  Report Type: Spontaneous
  Country: US (occurrence: US)
  Receive Date: 20190409
  Receipt Date: 20190409
  Transmission Date: 20190711
  Serious: No
  Sender: FDA-Public Use
  Company Number: US-ARALEZ PHARMACEUTICALS R+D INC.-2019-ARA-001051

PATIENT
  Sex: Female
  Weight: 77.1 kg

DRUGS (5)
  1. TOPROL XL [Suspect]
     Active Substance: METOPROLOL SUCCINATE
     Indication: HYPERTENSION
     Dosage: 75 MG, QD
     Route: 065
  2. TOPROL XL [Suspect]
     Active Substance: METOPROLOL SUCCINATE
     Dosage: 100 MG, QD
  3. NATURE-THROID [Concomitant]
     Active Substance: THYROID, PORCINE
  4. TOPROL XL [Suspect]
     Active Substance: METOPROLOL SUCCINATE
     Dosage: 50 MG, QD
  5. METOPROLOL SUCCINATE. [Suspect]
     Active Substance: METOPROLOL SUCCINATE
     Indication: HYPERTENSION
     Route: 065

REACTIONS (2)
  - Drug ineffective [Unknown]
  - Therapeutic product effect incomplete [Recovered/Resolved]
